FAERS Safety Report 6964850-X (Version None)
Quarter: 2010Q3

REPORT INFORMATION
  Report Type: 
  Country: None (occurrence: None)
  Receive Date: 20100901
  Receipt Date: 20100819
  Transmission Date: 20110219
  Serious: Yes (Hospitalization)
  Sender: FDA-Public Use
  Company Number: 2010AC000493

PATIENT
  Age: 69 Year
  Sex: Male

DRUGS (9)
  1. DIGOXIN [Suspect]
     Dosage: 0.25 MG; QD;PO
     Route: 048
     Dates: start: 19900101, end: 20080115
  2. SINGULAIR [Concomitant]
  3. OMEPRAZOLE [Concomitant]
  4. HYDROCHLOROTHIAZIDE [Concomitant]
  5. COUMADIN [Concomitant]
  6. VICODIN [Concomitant]
  7. ZOSYN [Concomitant]
  8. VITAMIN K TAB [Concomitant]
  9. CEFTRIAXONE [Concomitant]

REACTIONS (28)
  - ATELECTASIS [None]
  - ATRIAL FIBRILLATION [None]
  - CARDIAC ARREST [None]
  - CARDIAC TAMPONADE [None]
  - CARDIO-RESPIRATORY ARREST [None]
  - COAGULOPATHY [None]
  - DIALYSIS [None]
  - DUODENITIS [None]
  - HAEMODIALYSIS [None]
  - HEPATIC FAILURE [None]
  - HYPOPERFUSION [None]
  - HYPOTENSION [None]
  - INTERNATIONAL NORMALISED RATIO INCREASED [None]
  - ISCHAEMIC HEPATITIS [None]
  - LABILE BLOOD PRESSURE [None]
  - LEUKOCYTOSIS [None]
  - PANCREATITIS [None]
  - PERICARDIAL EFFUSION [None]
  - PLEURAL EFFUSION [None]
  - PNEUMONIA [None]
  - PYELONEPHRITIS [None]
  - RENAL FAILURE [None]
  - RENAL FAILURE ACUTE [None]
  - RENAL TUBULAR NECROSIS [None]
  - RESPIRATORY FAILURE [None]
  - TACHYCARDIA [None]
  - THERAPEUTIC AGENT TOXICITY [None]
  - THROMBOCYTOPENIA [None]
